FAERS Safety Report 12403016 (Version 1)
Quarter: 2016Q2

REPORT INFORMATION
  Report Type: Spontaneous
  Country: FR (occurrence: FR)
  Receive Date: 20160525
  Receipt Date: 20160525
  Transmission Date: 20160815
  Serious: Yes (Hospitalization)
  Sender: FDA-Public Use
  Company Number: FR-009507513-1605FRA010871

PATIENT
  Age: 37 Year
  Sex: Female

DRUGS (16)
  1. CUBICIN [Suspect]
     Active Substance: DAPTOMYCIN
     Indication: SEPSIS
     Dosage: 600 MG, QD
     Route: 042
     Dates: start: 20160405, end: 20160413
  2. DIPRIVAN [Concomitant]
     Active Substance: PROPOFOL
  3. SOLU-MEDROL [Suspect]
     Active Substance: METHYLPREDNISOLONE SODIUM SUCCINATE
     Dosage: UNK
     Route: 042
     Dates: start: 20160420
  4. SUFENTANIL [Concomitant]
     Active Substance: SUFENTANIL
  5. INSULIN [Concomitant]
     Active Substance: INSULIN NOS
  6. ERYTHROMYCIN. [Suspect]
     Active Substance: ERYTHROMYCIN
     Indication: PRODUCT USED FOR UNKNOWN INDICATION
     Dosage: 250 MG, QD
     Route: 042
     Dates: start: 20160403, end: 20160411
  7. TYGACIL [Concomitant]
     Active Substance: TIGECYCLINE
  8. MIDAZOLAM [Concomitant]
     Active Substance: MIDAZOLAM\MIDAZOLAM HYDROCHLORIDE
  9. ERYTHROMYCIN. [Suspect]
     Active Substance: ERYTHROMYCIN
     Dosage: UNK
     Route: 042
     Dates: start: 20160420
  10. BRICANYL [Concomitant]
     Active Substance: TERBUTALINE SULFATE
  11. EUPRESSYL [Concomitant]
     Active Substance: URAPIDIL
  12. SOLU-MEDROL [Suspect]
     Active Substance: METHYLPREDNISOLONE SODIUM SUCCINATE
     Indication: ACUTE DISSEMINATED ENCEPHALOMYELITIS
     Dosage: 1 G, QD
     Route: 042
     Dates: start: 20160407, end: 20160409
  13. LOXEN [Concomitant]
     Active Substance: NICARDIPINE HYDROCHLORIDE
  14. EUPANTOL [Concomitant]
     Active Substance: PANTOPRAZOLE SODIUM
  15. HEPARIN SODIUM. [Concomitant]
     Active Substance: HEPARIN SODIUM
  16. PERFALGAN [Concomitant]
     Active Substance: ACETAMINOPHEN

REACTIONS (4)
  - Hyperkalaemia [Unknown]
  - Acute kidney injury [Unknown]
  - Acidosis [Unknown]
  - Rhabdomyolysis [Unknown]

NARRATIVE: CASE EVENT DATE: 20160408
